FAERS Safety Report 8996956 (Version 3)
Quarter: 2013Q1

REPORT INFORMATION
  Report Type: Spontaneous
  Country: US (occurrence: None)
  Receive Date: 20121221
  Receipt Date: 20121221
  Transmission Date: 20140127
  Serious: Yes (Hospitalization, Other)
  Sender: FDA-Public Use
  Company Number: AUR-APL-2012-05421

PATIENT
  Age: 55 Year
  Sex: Male
  Weight: 131 kg

DRUGS (9)
  1. METOPROLOL [Suspect]
     Indication: PRODUCT USED FOR UNKNOWN INDICATION
  2. VIAGRA [Suspect]
     Indication: ERECTILE DYSFUNCTION
     Dosage: (100 MG, AS REQUIRED), ORAL
     Route: 048
     Dates: start: 20100428
  3. MICARDIS [Suspect]
     Indication: HYPERTENSION
     Dosage: 80 MG, 1 IN 1 D
     Route: 048
  4. CIALIS [Suspect]
     Indication: ERECTILE DYSFUNCTION
  5. CRESTOR [Concomitant]
  6. ZANTAC [Concomitant]
  7. PLAVIX [Concomitant]
  8. BYSTOLIC [Concomitant]
  9. BABY ASPIRIN [Concomitant]

REACTIONS (9)
  - Vision blurred [None]
  - Abdominal pain upper [None]
  - Back pain [None]
  - Bile duct stone [None]
  - Biliary tract infection [None]
  - Staphylococcal infection [None]
  - Product quality issue [None]
  - Drug interaction [None]
  - Drug ineffective [None]
